FAERS Safety Report 12625259 (Version 1)
Quarter: 2016Q3

REPORT INFORMATION
  Report Type: Spontaneous
  Country: US (occurrence: US)
  Receive Date: 20160805
  Receipt Date: 20160805
  Transmission Date: 20161109
  Serious: No
  Sender: FDA-Public Use
  Company Number: US-BAYER-2016-151631

PATIENT
  Age: 86 Year
  Sex: Male
  Weight: 77.98 kg

DRUGS (2)
  1. MIRALAX [Suspect]
     Active Substance: POLYETHYLENE GLYCOL 3350
     Indication: CONSTIPATION
     Dosage: 1 DF, QD
     Route: 048
     Dates: start: 201603
  2. KRISTALOSE [Concomitant]
     Active Substance: LACTULOSE

REACTIONS (1)
  - Product use issue [None]

NARRATIVE: CASE EVENT DATE: 201603
